FAERS Safety Report 8602437 (Version 3)
Quarter: 2015Q3

REPORT INFORMATION
  Report Type: Report from Study
  Country: US (occurrence: US)
  Receive Date: 20120607
  Receipt Date: 20150819
  Transmission Date: 20151125
  Serious: Yes (Hospitalization, Other)
  Sender: FDA-Public Use
  Company Number: US-AMGEN-USASP2012034847

PATIENT
  Age: 50 Year
  Sex: Female

DRUGS (1)
  1. ENBREL [Suspect]
     Active Substance: ETANERCEPT
     Indication: RHEUMATOID ARTHRITIS
     Dosage: 50 MG, QWK
     Route: 065
     Dates: start: 20001020

REACTIONS (9)
  - Rheumatoid arthritis [Recovered/Resolved]
  - Decreased appetite [Recovered/Resolved]
  - Elbow deformity [Not Recovered/Not Resolved]
  - Lung infection [Recovered/Resolved]
  - Weight decreased [Recovered/Resolved]
  - Mobility decreased [Recovered/Resolved]
  - Bronchitis chronic [Recovered/Resolved]
  - Injection site pain [Not Recovered/Not Resolved]
  - Osteoarthritis [Recovered/Resolved]

NARRATIVE: CASE EVENT DATE: 200010
